FAERS Safety Report 14304473 (Version 1)
Quarter: 2017Q4

REPORT INFORMATION
  Report Type: Report from Study
  Country: JP (occurrence: JP)
  Receive Date: 20171219
  Receipt Date: 20171219
  Transmission Date: 20180321
  Serious: Yes (Hospitalization, Other)
  Sender: FDA-Public Use
  Company Number: JP-OTSUKA-005068

PATIENT
  Age: 66 Year
  Sex: Female

DRUGS (23)
  1. TELESMIN [Concomitant]
     Dosage: 600 MG, QD
     Route: 048
     Dates: end: 20080728
  2. RIVOTRIL [Concomitant]
     Active Substance: CLONAZEPAM
     Dosage: 3 MG, QD
     Route: 048
     Dates: end: 20080728
  3. FERROUS SULFATE. [Concomitant]
     Active Substance: FERROUS SULFATE
     Dosage: UNK
     Dates: end: 20080728
  4. CIRCANATTEN [Concomitant]
     Dosage: 3 DF, DAILY DOSE
     Route: 048
     Dates: end: 20080728
  5. LENDORMIN D [Concomitant]
     Active Substance: BROTIZOLAM
     Indication: INSOMNIA
     Dosage: 0.25 MG, QD
     Route: 048
     Dates: start: 20071103, end: 20080728
  6. SERENACE [Suspect]
     Active Substance: HALOPERIDOL
     Indication: AGITATION
  7. ZYPREXA [Concomitant]
     Active Substance: OLANZAPINE
     Indication: SCHIZOPHRENIA
     Dosage: 10 MG, QD
     Route: 048
     Dates: start: 20071103, end: 20080502
  8. ZYPREXA [Concomitant]
     Active Substance: OLANZAPINE
     Dosage: 5 MG, QD
     Route: 048
     Dates: start: 20080503, end: 20080509
  9. ARIPIPRAZOLE. [Suspect]
     Active Substance: ARIPIPRAZOLE
     Dosage: 6 MG, QD
     Route: 048
     Dates: start: 20080503, end: 20080509
  10. SERENACE [Suspect]
     Active Substance: HALOPERIDOL
     Indication: THINKING ABNORMAL
  11. VALERIN [Concomitant]
     Active Substance: VALPROATE SODIUM
     Dosage: 500 MG, QD
     Route: 048
     Dates: end: 20080728
  12. MAGLAX [Concomitant]
     Active Substance: MAGNESIUM OXIDE
     Dosage: 990 MG, QD
     Route: 048
     Dates: start: 20071103, end: 20080728
  13. SENNA [Concomitant]
     Active Substance: SENNA LEAF\SENNOSIDES\SENNOSIDES A AND B
     Dosage: FORMULATION: TAB
     Dates: end: 20080728
  14. SERENACE [Suspect]
     Active Substance: HALOPERIDOL
     Indication: SCHIZOPHRENIA
     Dosage: 5 MG, QD
     Route: 030
     Dates: start: 20080712, end: 20080728
  15. HALOSTEN [Concomitant]
     Active Substance: HALOPERIDOL
     Indication: SCHIZOPHRENIA
     Dosage: 1 MG, QD
     Route: 048
     Dates: start: 20071103, end: 20080728
  16. CETILO [Concomitant]
     Active Substance: SENNA LEAF
     Dosage: 3 DF, DAILY DOSE
     Route: 048
     Dates: start: 20071103, end: 20080728
  17. BENZALIN [Concomitant]
     Active Substance: NITRAZEPAM
     Indication: INSOMNIA
     Dosage: 5 MG, QD
     Route: 048
     Dates: start: 20071103, end: 20080728
  18. ARIPIPRAZOLE. [Suspect]
     Active Substance: ARIPIPRAZOLE
     Indication: SCHIZOPHRENIA
     Dosage: 3 MG, QD
     Route: 048
     Dates: start: 20080426, end: 20080502
  19. ARIPIPRAZOLE. [Suspect]
     Active Substance: ARIPIPRAZOLE
     Dosage: 12 MG, QD
     Route: 048
     Dates: start: 20080510, end: 20080728
  20. FERROUS SULFATE. [Concomitant]
     Active Substance: FERROUS SULFATE
     Dosage: 1 DF, DAILY DOSE
     Route: 048
     Dates: end: 20080728
  21. CLONAZEPAM. [Concomitant]
     Active Substance: CLONAZEPAM
     Dosage: UNK
     Dates: end: 20080728
  22. CARBAMAZEPINE. [Concomitant]
     Active Substance: CARBAMAZEPINE
     Dosage: UNK
     Dates: end: 20080728
  23. CEREKINON [Concomitant]
     Active Substance: TRIMEBUTINE
     Dosage: 300 MG, QD
     Route: 048
     Dates: end: 20080728

REACTIONS (3)
  - Thinking abnormal [Recovering/Resolving]
  - Agitation [Recovering/Resolving]
  - Ileus [Recovering/Resolving]

NARRATIVE: CASE EVENT DATE: 20080712
